FAERS Safety Report 15567693 (Version 1)
Quarter: 2018Q4

REPORT INFORMATION
  Report Type: Spontaneous
  Country: US (occurrence: US)
  Receive Date: 20181030
  Receipt Date: 20181030
  Transmission Date: 20190205
  Serious: No
  Sender: FDA-Public Use
  Company Number: US-SA-2018SA297721

PATIENT
  Sex: Male

DRUGS (1)
  1. FLEX-ALL ^CHATTEM^ [Suspect]
     Active Substance: MENTHOL
     Dosage: UNK UNK, UNK
     Route: 065

REACTIONS (1)
  - Incorrect route of product administration [Unknown]
